FAERS Safety Report 8327579-1 (Version None)
Quarter: 2012Q2

REPORT INFORMATION
  Report Type: 
  Country: None (occurrence: None)
  Receive Date: 20120502
  Receipt Date: 20120423
  Transmission Date: 20120825
  Serious: Yes (Hospitalization)
  Sender: FDA-Public Use
  Company Number: US-BAYER-2011-053845

PATIENT
  Age: 25 Year
  Sex: Female
  Weight: 100.68 kg

DRUGS (1)
  1. MIRENA [Suspect]
     Dosage: UNK
     Route: 015
     Dates: start: 20090928, end: 20110621

REACTIONS (3)
  - DEVICE DISLOCATION [None]
  - DYSPAREUNIA [None]
  - ABDOMINAL PAIN UPPER [None]
